FAERS Safety Report 19725808 (Version 2)
Quarter: 2021Q3

REPORT INFORMATION
  Report Type: Spontaneous
  Country: US (occurrence: US)
  Receive Date: 20210819
  Receipt Date: 20210826
  Transmission Date: 20211014
  Serious: Yes (Other)
  Sender: FDA-Public Use
  Company Number: US-TEVA-2021-US-1942312

PATIENT
  Age: 19 Year
  Sex: Female

DRUGS (37)
  1. METHOTREXATE. [Suspect]
     Active Substance: METHOTREXATE
     Dosage: DAY 4.
     Route: 037
  2. CYTARABINE. [Suspect]
     Active Substance: CYTARABINE
     Indication: ACUTE LYMPHOCYTIC LEUKAEMIA
     Dosage: 2000 MG/M2 DAILY; FLAG REGIMEN; DAYS 1?5
     Route: 042
  3. RITUXIMAB. [Suspect]
     Active Substance: RITUXIMAB
     Indication: ACUTE LYMPHOCYTIC LEUKAEMIA
     Dosage: ALONG WITH HYPER?MINI?CVD REGIMEN AND AS A PART OF COURSE B; DAY 1+8.
     Route: 042
  4. INOTUZUMAB [Suspect]
     Active Substance: INOTUZUMAB OZOGAMICIN
     Indication: ACUTE LYMPHOCYTIC LEUKAEMIA
     Dosage: DAY 2+8.
     Route: 042
  5. VINCRISTINE [Suspect]
     Active Substance: VINCRISTINE
     Dosage: HYPER?MINI?CVD REGIMEN; DAY 1+8.
     Route: 042
  6. MERCAPTOPURINE. [Suspect]
     Active Substance: MERCAPTOPURINE
     Indication: ACUTE LYMPHOCYTIC LEUKAEMIA
     Dosage: MAINTENANCE THERAPY
     Route: 065
  7. BLINATUMOMAB [Suspect]
     Active Substance: BLINATUMOMAB
     Indication: ACUTE LYMPHOCYTIC LEUKAEMIA
     Dosage: RECEIVED 1 CYCLE IN ADDITION TO HYPER?CVAD REGIMEN.
     Route: 065
  8. FILGRASTIM [Concomitant]
     Active Substance: FILGRASTIM
     Indication: COLONY STIMULATING FACTOR THERAPY
     Route: 065
  9. DEXAMETHASONE. [Suspect]
     Active Substance: DEXAMETHASONE
     Indication: ACUTE LYMPHOCYTIC LEUKAEMIA
     Dosage: 40 MILLIGRAM DAILY; HYPER CVAD REGIMEN; DAYS 1?4, 11?14; ; RECEIVED 4 CYCLES.
     Route: 065
  10. METHOTREXATE. [Suspect]
     Active Substance: METHOTREXATE
     Dosage: AS A PART OF COURSE B AFTER HYPER?MINI?CVD REGIMEN; DAY 1.
     Route: 042
  11. METHOTREXATE. [Suspect]
     Active Substance: METHOTREXATE
     Dosage: ALONG WITH HYPER?MINI?CVD REGIMEN; DAY 4.
     Route: 037
  12. VINCRISTINE [Suspect]
     Active Substance: VINCRISTINE
     Dosage: ALONG WITH FLAG REGIMEN; DAY 8
     Route: 042
  13. VINCRISTINE [Suspect]
     Active Substance: VINCRISTINE
     Dosage: HYPER?CVAD REGIMEN; DAYS 4+11; RECEIVED 4 CYCLES.
     Route: 042
  14. CYTARABINE. [Suspect]
     Active Substance: CYTARABINE
     Dosage: 1000 MG/M2 DAILY; DAYS 3+4.
     Route: 042
  15. CYTARABINE. [Suspect]
     Active Substance: CYTARABINE
     Dosage: AS A PART OF COURSE B AFTER HYPER?MINI?CVD REGIMEN; DAY 8.
     Route: 037
  16. METHOTREXATE. [Suspect]
     Active Substance: METHOTREXATE
     Dosage: DAY 1.
     Route: 042
  17. VINCRISTINE [Suspect]
     Active Substance: VINCRISTINE
     Dosage: DAY 1+8.
     Route: 042
  18. DEXAMETHASONE. [Suspect]
     Active Substance: DEXAMETHASONE
     Indication: ACUTE LYMPHOCYTIC LEUKAEMIA
     Dosage: 20 MG/M2 DAILY; HYPER?MINI?CVD REGIMEN; DAY 1?4, 11?14.
     Route: 065
  19. METHOTREXATE. [Suspect]
     Active Substance: METHOTREXATE
     Dosage: AS A PART OF COURSE B AFTER HYPER?MINI?CVD REGIMEN; DAY 4.
     Route: 037
  20. VINCRISTINE [Suspect]
     Active Substance: VINCRISTINE
     Indication: ACUTE LYMPHOCYTIC LEUKAEMIA
     Dosage: MAINTENANCE THERAPY
     Route: 065
  21. CYTARABINE. [Suspect]
     Active Substance: CYTARABINE
     Dosage: COURSE B; DAY 7.
     Route: 037
  22. CYCLOPHOSPHAMIDE. [Suspect]
     Active Substance: CYCLOPHOSPHAMIDE
     Indication: ACUTE LYMPHOCYTIC LEUKAEMIA
     Dosage: 60 MG/KG DAILY; CONDITIONING REGIMEN; DAYS ?3 AND ?2.
     Route: 042
  23. DOXORUBICIN [Suspect]
     Active Substance: DOXORUBICIN
     Indication: ACUTE LYMPHOCYTIC LEUKAEMIA
     Dosage: HYPER CVAD REGIMEN; DAY 4 ; RECEIVED 4 CYCLES.
     Route: 042
  24. METHOTREXATE. [Suspect]
     Active Substance: METHOTREXATE
     Indication: ACUTE LYMPHOCYTIC LEUKAEMIA
     Dosage: MAINTENANCE THERAPY
     Route: 065
  25. METHOTREXATE. [Suspect]
     Active Substance: METHOTREXATE
     Dosage: COURSE B: DAY 1.
     Route: 042
  26. CYTARABINE. [Suspect]
     Active Substance: CYTARABINE
     Dosage: ALONG WITH HYPER?MINI?CVD REGIMEN; DAY 8.
     Route: 037
  27. CYTARABINE. [Suspect]
     Active Substance: CYTARABINE
     Dosage: DAY 8.
     Route: 037
  28. CYCLOPHOSPHAMIDE. [Suspect]
     Active Substance: CYCLOPHOSPHAMIDE
     Indication: BONE MARROW CONDITIONING REGIMEN
     Dosage: 600 MG/M2 DAILY; HYPER CVAD REGIMEN; DAYS 1?3; RECEIVED 4 CYCLES.
     Route: 042
  29. TISAGENLECLEUCEL. [Suspect]
     Active Substance: TISAGENLECLEUCEL
     Indication: ACUTE LYMPHOCYTIC LEUKAEMIA
     Route: 050
  30. FLUDARABINE [Suspect]
     Active Substance: FLUDARABINE PHOSPHATE
     Indication: ACUTE LYMPHOCYTIC LEUKAEMIA
     Dosage: 30 MG/M2 DAILY; FLAG REGIMEN; DAYS 1?5
     Route: 042
  31. PREDNISONE. [Suspect]
     Active Substance: PREDNISONE
     Indication: ACUTE LYMPHOCYTIC LEUKAEMIA
     Dosage: MAINTENANCE THERAPY
     Route: 065
  32. BLINATUMOMAB [Suspect]
     Active Substance: BLINATUMOMAB
     Indication: ACUTE LYMPHOCYTIC LEUKAEMIA
     Dosage: RECEIVED 1 CYCLE
     Route: 065
  33. CYCLOPHOSPHAMIDE. [Suspect]
     Active Substance: CYCLOPHOSPHAMIDE
     Dosage: 300 MG/M2 DAILY; HYPER?MINI?CVD REGIMEN; DAY 1?3.
     Route: 042
  34. INOTUZUMAB [Suspect]
     Active Substance: INOTUZUMAB OZOGAMICIN
     Indication: ACUTE LYMPHOCYTIC LEUKAEMIA
     Dosage: ALONG WITH HYPER?MINI?CVD REGIMEN; CYCLE 1, DAY 3.
     Route: 042
  35. INOTUZUMAB [Suspect]
     Active Substance: INOTUZUMAB OZOGAMICIN
     Indication: ACUTE LYMPHOCYTIC LEUKAEMIA
     Dosage: DAY 1+8.
     Route: 042
  36. CYTARABINE. [Suspect]
     Active Substance: CYTARABINE
     Dosage: 6000 MG/M2 DAILY; COURSE B; DAYS 2+3.
     Route: 042
  37. CYTARABINE. [Suspect]
     Active Substance: CYTARABINE
     Dosage: 1000 MG/M2 DAILY; COURSE B AFTER HYPER?MINI?CVD REGIMEN; DAYS 2+3.
     Route: 042

REACTIONS (3)
  - Drug ineffective [Unknown]
  - Cytokine release syndrome [Recovered/Resolved]
  - Immune effector cell-associated neurotoxicity syndrome [Recovered/Resolved]
